FAERS Safety Report 8849590 (Version 1)
Quarter: 2012Q4

REPORT INFORMATION
  Report Type: 
  Country: FR (occurrence: FR)
  Receive Date: 20121019
  Receipt Date: 20121019
  Transmission Date: 20130627
  Serious: Yes (Other)
  Sender: FDA-Public Use
  Company Number: FR-ROXANE LABORATORIES, INC.-2012-RO-02008RO

PATIENT
  Age: 8 Year
  Sex: Female

DRUGS (4)
  1. METHOTREXATE [Suspect]
     Indication: DERMATOMYOSITIS
  2. MYCOPHENOLATE MOFETIL [Suspect]
     Indication: DERMATOMYOSITIS
  3. METHYLPREDNISOLONE [Suspect]
     Indication: DERMATOMYOSITIS
  4. HYDROXYCHLOROQUINE [Suspect]
     Indication: DERMATOMYOSITIS

REACTIONS (3)
  - Neutropenia [Unknown]
  - Viral infection [Unknown]
  - Arthritis [Unknown]
